FAERS Safety Report 5105470-1 (Version None)
Quarter: 2006Q3

REPORT INFORMATION
  Report Type: 
  Country: None (occurrence: None)
  Receive Date: 20060915
  Receipt Date: 20060807
  Transmission Date: 20061208
  Serious: No
  Sender: FDA-Public Use
  Company Number: US-GLAXOSMITHKLINE-A0615610A

PATIENT
  Age: 78 Year
  Sex: Male

DRUGS (2)
  1. AVANDARYL [Suspect]
     Dosage: .3TAB PER DAY
     Route: 048
     Dates: start: 20060804
  2. ASPIRIN [Concomitant]

REACTIONS (6)
  - DEPRESSION [None]
  - DIZZINESS [None]
  - ELEVATED MOOD [None]
  - ENERGY INCREASED [None]
  - SLEEP DISORDER [None]
  - THERAPEUTIC RESPONSE UNEXPECTED [None]
